FAERS Safety Report 23708366 (Version 1)
Quarter: 2024Q2

REPORT INFORMATION
  Report Type: Spontaneous
  Country: ZA (occurrence: None)
  Receive Date: 20240404
  Receipt Date: 20240404
  Transmission Date: 20240715
  Serious: Yes (Hospitalization)
  Sender: FDA-Public Use
  Company Number: 2024A075780

PATIENT
  Age: 56 Year
  Sex: Female

DRUGS (4)
  1. BUDESONIDE\FORMOTEROL [Suspect]
     Active Substance: BUDESONIDE\FORMOTEROL
     Indication: Asthma
     Dosage: 60 DOSE, 160 UG UNKNOWN
     Route: 055
  2. ALLECET [Concomitant]
     Indication: Hypersensitivity
     Dosage: 10.0MG UNKNOWN
     Route: 048
  3. FLUTICASONE FUROATE [Concomitant]
     Active Substance: FLUTICASONE FUROATE
     Indication: Hypersensitivity
     Dosage: 120 DOSE UNKNOWN
     Route: 055
  4. HYDROCHLOROTHIAZIDE [Concomitant]
     Active Substance: HYDROCHLOROTHIAZIDE
     Indication: Hypertension
     Dosage: 25.0MG UNKNOWN
     Route: 048

REACTIONS (2)
  - Dyspnoea [Unknown]
  - Drug ineffective [Unknown]
